FAERS Safety Report 23845272 (Version 2)
Quarter: 2024Q2

REPORT INFORMATION
  Report Type: Spontaneous
  Country: US (occurrence: US)
  Receive Date: 20240511
  Receipt Date: 20240613
  Transmission Date: 20240716
  Serious: No
  Sender: FDA-Public Use
  Company Number: US-SA-SAC20240508000468

PATIENT
  Age: 13 Year
  Sex: Female
  Weight: 72.7 kg

DRUGS (3)
  1. DUPIXENT [Suspect]
     Active Substance: DUPILUMAB
     Indication: Asthma
     Dosage: 200 MG, QOW
     Route: 058
  2. SYMBICORT [Concomitant]
     Active Substance: BUDESONIDE\FORMOTEROL FUMARATE DIHYDRATE
  3. SPIRIVA [Concomitant]
     Active Substance: TIOTROPIUM BROMIDE MONOHYDRATE

REACTIONS (14)
  - Upper-airway cough syndrome [Unknown]
  - Headache [Unknown]
  - Cough [Unknown]
  - Chest pain [Unknown]
  - Wheezing [Unknown]
  - Viral infection [Unknown]
  - Chest discomfort [Unknown]
  - Middle insomnia [Unknown]
  - Dry mouth [Unknown]
  - Nasal congestion [Unknown]
  - Condition aggravated [Unknown]
  - Nasopharyngitis [Unknown]
  - Oropharyngeal pain [Unknown]
  - Inappropriate schedule of product administration [Unknown]

NARRATIVE: CASE EVENT DATE: 20240501
